FAERS Safety Report 7524565-6 (Version None)
Quarter: 2011Q2

REPORT INFORMATION
  Report Type: 
  Country: None (occurrence: None)
  Receive Date: 20110601
  Receipt Date: 20110601
  Transmission Date: 20111010
  Serious: Yes (Hospitalization, Other)
  Sender: FDA-Public Use
  Company Number: None

PATIENT
  Sex: Female
  Weight: 87.7 kg

DRUGS (2)
  1. ACTOS [Suspect]
     Indication: TYPE 2 DIABETES MELLITUS
     Dosage: ONE TAB BID ORAL
     Route: 048
     Dates: start: 20110201, end: 20110501
  2. METFORMIN HCL [Suspect]
     Indication: TYPE 2 DIABETES MELLITUS
     Dosage: ONE TAB BID ORAL
     Route: 048
     Dates: start: 20100201, end: 20110501

REACTIONS (8)
  - NASOPHARYNGITIS [None]
  - PLEURAL EFFUSION [None]
  - RENAL IMPAIRMENT [None]
  - VISUAL IMPAIRMENT [None]
  - ANAEMIA [None]
  - DYSPNOEA [None]
  - OEDEMA [None]
  - INTRAOCULAR PRESSURE INCREASED [None]
